FAERS Safety Report 5844607-3 (Version None)
Quarter: 2008Q3

REPORT INFORMATION
  Report Type: 
  Country: None (occurrence: None)
  Receive Date: 20080812
  Receipt Date: 20080131
  Transmission Date: 20090109
  Serious: Yes (Other)
  Sender: FDA-Public Use
  Company Number: 2008S1011910

PATIENT
  Age: 61 Year
  Sex: Male

DRUGS (3)
  1. AMLODIPINE [Suspect]
     Indication: HYPERTENSION
     Dosage: 5 MG;  ;ORAL
     Route: 048
     Dates: start: 20080107, end: 20080116
  2. RAMIPRIL [Concomitant]
  3. THYROXINE [Concomitant]

REACTIONS (3)
  - ARTHRALGIA [None]
  - CHEST PAIN [None]
  - FEELING ABNORMAL [None]
